FAERS Safety Report 11795424 (Version 1)
Quarter: 2015Q4

REPORT INFORMATION
  Report Type: Report from Study
  Country: US (occurrence: None)
  Receive Date: 20151202
  Receipt Date: 20151202
  Transmission Date: 20160305
  Serious: Yes (Other)
  Sender: FDA-Public Use
  Company Number: US-MDT-ADR-2015-02277

PATIENT
  Age: 51 Year
  Sex: Female

DRUGS (2)
  1. COMPOUNDED BACLOFEN INTRATHECAL 150.0MCG/ML [Suspect]
     Active Substance: BACLOFEN
     Indication: PAIN
     Dosage: 22.65MCG/DAY
  2. MORPHINE INTRATHECAL 1.0MG/ML [Suspect]
     Active Substance: MORPHINE
     Indication: PAIN
     Dosage: 0.1510MG/DAY

REACTIONS (3)
  - Cerebrospinal fluid leakage [None]
  - Post lumbar puncture syndrome [None]
  - Nausea [None]
